FAERS Safety Report 16126359 (Version 3)
Quarter: 2020Q3

REPORT INFORMATION
  Report Type: Report from Study
  Country: US (occurrence: US)
  Receive Date: 20190328
  Receipt Date: 20200812
  Transmission Date: 20201102
  Serious: Yes (Death, Hospitalization)
  Sender: FDA-Public Use
  Company Number: US-ROCHE-2187203

PATIENT
  Age: 63 Year
  Sex: Male

DRUGS (2)
  1. COBIMETINIB. [Suspect]
     Active Substance: COBIMETINIB
     Indication: ADENOCARCINOMA
     Dosage: LAST ADMINISTERED DATE ;08/SEP/2018
     Route: 048
     Dates: start: 20180829
  2. ATEZOLIZUMAB. [Suspect]
     Active Substance: ATEZOLIZUMAB
     Indication: ADENOCARCINOMA
     Dosage: LAST ADMINISTERED DATE ; 29/AUG/2018
     Route: 042
     Dates: start: 20180829

REACTIONS (14)
  - Hyponatraemia [Unknown]
  - Pleural effusion [Unknown]
  - Constipation [Unknown]
  - Dyspnoea [Unknown]
  - Bile duct stenosis [Recovered/Resolved]
  - Sinus tachycardia [Unknown]
  - Cholangitis [Unknown]
  - Sepsis [Not Recovered/Not Resolved]
  - Fatigue [Recovered/Resolved]
  - Abdominal distension [Unknown]
  - Pneumonia [Recovered/Resolved]
  - Abdominal pain [Unknown]
  - Ascites [Unknown]
  - Hypoxia [Recovered/Resolved]

NARRATIVE: CASE EVENT DATE: 20180908
